FAERS Safety Report 8464119-0 (Version None)
Quarter: 2012Q2

REPORT INFORMATION
  Report Type: 
  Country: None (occurrence: None)
  Receive Date: 20120625
  Receipt Date: 20120613
  Transmission Date: 20120825
  Serious: Yes (Hospitalization)
  Sender: FDA-Public Use
  Company Number: TH-INCYTE CORPORATION-2012IN001075

PATIENT
  Sex: Female
  Weight: 47.2 kg

DRUGS (2)
  1. INC424 [Suspect]
     Indication: MYELOFIBROSIS
     Dosage: 30 MG, BID
     Route: 048
     Dates: start: 20120322
  2. BLOOD TRANSFUSION, AUXILIARY PRODUCTS [Concomitant]

REACTIONS (1)
  - PULMONARY CONGESTION [None]
